FAERS Safety Report 24719222 (Version 1)
Quarter: 2024Q4

REPORT INFORMATION
  Report Type: Spontaneous
  Country: CN (occurrence: CN)
  Receive Date: 20241210
  Receipt Date: 20241210
  Transmission Date: 20250114
  Serious: Yes (Hospitalization)
  Sender: ALEXION PHARMACEUTICALS
  Company Number: CN-ASTRAZENECA-202412CHN003130CN

PATIENT
  Age: 82 Year
  Weight: 50 kg

DRUGS (1)
  1. DAPAGLIFLOZIN [Suspect]
     Active Substance: DAPAGLIFLOZIN
     Indication: Cardiac failure chronic
     Dosage: 5 MILLIGRAM, QD

REACTIONS (9)
  - Nocturia [Recovering/Resolving]
  - Pollakiuria [Recovering/Resolving]
  - Micturition urgency [Recovering/Resolving]
  - Urinary occult blood positive [Recovering/Resolving]
  - White blood cells urine positive [Recovering/Resolving]
  - Bacterial test positive [Recovering/Resolving]
  - White blood cells urine positive [Recovering/Resolving]
  - Haematuria [Recovering/Resolving]
  - Escherichia urinary tract infection [Recovering/Resolving]
